FAERS Safety Report 5775686-X (Version None)
Quarter: 2008Q2

REPORT INFORMATION
  Report Type: 
  Country: None (occurrence: None)
  Receive Date: 20080617
  Receipt Date: 20080605
  Transmission Date: 20081010
  Serious: Yes (Other)
  Sender: FDA-Public Use
  Company Number: US-PFIZER INC-2006027679

PATIENT
  Sex: Female

DRUGS (11)
  1. BEXTRA [Suspect]
     Indication: PATELLOFEMORAL PAIN SYNDROME
  2. BEXTRA [Suspect]
     Indication: BACK PAIN
  3. BEXTRA [Suspect]
     Indication: ARTHRALGIA
  4. AMOXICILLIN [Concomitant]
     Indication: SINUSITIS
     Route: 048
  5. GLUCOTROL XL [Concomitant]
     Indication: DIABETES MELLITUS
     Route: 048
  6. LOPID [Concomitant]
     Indication: HYPERLIPIDAEMIA
     Route: 048
  7. PAXIL [Concomitant]
     Indication: DEPRESSION
     Route: 048
  8. ALLEGRA [Concomitant]
     Indication: RHINITIS
     Route: 048
  9. RHINOCORT [Concomitant]
     Indication: RHINITIS
     Route: 045
  10. PRINZIDE [Concomitant]
     Indication: HYPERTENSION
     Dosage: TEXT:40/25MG
     Route: 048
  11. HUMULIN N [Concomitant]
     Indication: DIABETES MELLITUS
     Dosage: TEXT:10 UNITS
     Route: 048

REACTIONS (4)
  - CELLULITIS [None]
  - MYOCARDIAL INFARCTION [None]
  - NEURODERMATITIS [None]
  - STEVENS-JOHNSON SYNDROME [None]
